FAERS Safety Report 8372023-1 (Version None)
Quarter: 2012Q2

REPORT INFORMATION
  Report Type: 
  Country: None (occurrence: None)
  Receive Date: 20120518
  Receipt Date: 20120504
  Transmission Date: 20120825
  Serious: Yes (Other)
  Sender: FDA-Public Use
  Company Number: CHPA2012US010467

PATIENT
  Sex: Female

DRUGS (3)
  1. CALCIUM CARBONATE [Concomitant]
  2. MAALOX MAX ANTACID+ANTIGAS [Suspect]
     Indication: GASTROOESOPHAGEAL REFLUX DISEASE
     Dosage: 3 DF, QD
     Route: 048
     Dates: end: 20120401
  3. NEXIUM [Concomitant]
     Dosage: UNK

REACTIONS (12)
  - GASTRIC PERFORATION [None]
  - ASTHENIA [None]
  - CHEST DISCOMFORT [None]
  - CONSTIPATION [None]
  - OESOPHAGEAL PAIN [None]
  - FATIGUE [None]
  - INCORRECT DRUG ADMINISTRATION DURATION [None]
  - GASTRIC MUCOSA ERYTHEMA [None]
  - URINARY TRACT INFECTION [None]
  - ABDOMINAL DISCOMFORT [None]
  - OFF LABEL USE [None]
  - THERAPEUTIC RESPONSE UNEXPECTED [None]
